FAERS Safety Report 10912460 (Version 1)
Quarter: 2015Q1

REPORT INFORMATION
  Report Type: Spontaneous
  Country: IT (occurrence: IT)
  Receive Date: 20150313
  Receipt Date: 20150313
  Transmission Date: 20150721
  Serious: Yes (Other)
  Sender: FDA-Public Use
  Company Number: IT-TEVA-546656ACC

PATIENT
  Age: 79 Year
  Sex: Female

DRUGS (1)
  1. CARBOPLATINO TEVA - TEVA PHARMA B.V. [Suspect]
     Active Substance: CARBOPLATIN
     Indication: OVARIAN CANCER
     Dosage: 334 MG CYCLICAL
     Route: 042
     Dates: start: 20150211, end: 20150211

REACTIONS (2)
  - Electrocardiogram abnormal [Recovered/Resolved]
  - Drug intolerance [Recovered/Resolved]

NARRATIVE: CASE EVENT DATE: 20150211
